FAERS Safety Report 8500060-2 (Version None)
Quarter: 2012Q3

REPORT INFORMATION
  Report Type: 
  Country: None (occurrence: None)
  Receive Date: 20120710
  Receipt Date: 20120709
  Transmission Date: 20120928
  Serious: Yes (Other)
  Sender: FDA-Public Use
  Company Number: CN-BAYER-2012-067870

PATIENT
  Age: 71 Year
  Sex: Female
  Weight: 49 kg

DRUGS (4)
  1. AZITHROMYCIN [Concomitant]
  2. AVELOX [Suspect]
     Indication: INFECTION
     Dosage: 400 MG, QD
     Route: 041
     Dates: start: 20110523, end: 20110526
  3. LIPITOR [Concomitant]
  4. LIPINGZHI [Concomitant]

REACTIONS (1)
  - HEPATIC FUNCTION ABNORMAL [None]
